FAERS Safety Report 10346235 (Version 5)
Quarter: 2014Q3

REPORT INFORMATION
  Report Type: Spontaneous
  Country: BR (occurrence: BR)
  Receive Date: 20140728
  Receipt Date: 20140815
  Transmission Date: 20150326
  Serious: Yes (Hospitalization, Other)
  Sender: FDA-Public Use
  Company Number: BR-009507513-1407BRA009523

PATIENT
  Age: 39 Year
  Sex: Male
  Weight: 129 kg

DRUGS (4)
  1. RIBAVIRIN (NON MERCK) [Concomitant]
     Indication: HEPATITIS C
     Dosage: 750 MG, Q12H
     Route: 048
     Dates: start: 20140613
  2. PEGINTRON [Suspect]
     Active Substance: PEGINTERFERON ALFA-2B
     Indication: HEPATITIS C
     Dosage: 0.7 ML, QW
     Route: 058
     Dates: start: 20140613
  3. VICTRELIS [Suspect]
     Active Substance: BOCEPREVIR
     Indication: HEPATITIS C
     Dosage: 800 MG, Q8H
     Route: 048
     Dates: start: 20140717
  4. PEGINTRON [Suspect]
     Active Substance: PEGINTERFERON ALFA-2B
     Dosage: 0.7 ML, QW
     Route: 058

REACTIONS (25)
  - Diarrhoea [Recovering/Resolving]
  - Bone pain [Not Recovered/Not Resolved]
  - Dysgeusia [Unknown]
  - Wound [Recovering/Resolving]
  - Pain in extremity [Recovering/Resolving]
  - Gastrooesophageal reflux disease [Unknown]
  - Asthenia [Recovering/Resolving]
  - Vomiting [Recovering/Resolving]
  - Vomiting [Recovered/Resolved]
  - Varicose vein [Not Recovered/Not Resolved]
  - Pruritus [Recovering/Resolving]
  - Loss of consciousness [Recovering/Resolving]
  - Oedema peripheral [Not Recovered/Not Resolved]
  - Chest pain [Recovering/Resolving]
  - Burning sensation [Not Recovered/Not Resolved]
  - Skin ulcer [Recovering/Resolving]
  - Diarrhoea [Recovered/Resolved]
  - Nausea [Unknown]
  - Feeling abnormal [Unknown]
  - Alopecia [Recovering/Resolving]
  - Thyroid disorder [Recovering/Resolving]
  - Skin discolouration [Not Recovered/Not Resolved]
  - Cough [Recovering/Resolving]
  - Varicose ulceration [Recovering/Resolving]
  - Wound complication [Recovering/Resolving]

NARRATIVE: CASE EVENT DATE: 20140613
